FAERS Safety Report 10448217 (Version 7)
Quarter: 2015Q3

REPORT INFORMATION
  Report Type: Report from Study
  Country: CA (occurrence: CA)
  Receive Date: 20140911
  Receipt Date: 20150709
  Transmission Date: 20151125
  Serious: Yes (Hospitalization)
  Sender: FDA-Public Use
  Company Number: CA-ROCHE-1458260

PATIENT
  Age: 65 Year
  Sex: Male
  Weight: 66.9 kg

DRUGS (34)
  1. ZANTAC [Concomitant]
     Active Substance: RANITIDINE HYDROCHLORIDE
     Route: 048
     Dates: start: 201403
  2. ACYCLOVIR. [Concomitant]
     Active Substance: ACYCLOVIR
     Indication: PROPHYLAXIS
     Route: 048
     Dates: start: 20140623
  3. PREDNISONE. [Concomitant]
     Active Substance: PREDNISONE
     Route: 048
     Dates: start: 201206, end: 20140831
  4. FLU SHOT [Concomitant]
     Active Substance: INFLUENZA VIRUS VACCINE
     Route: 030
     Dates: start: 20141203, end: 20141203
  5. OBINUTUZUMAB [Suspect]
     Active Substance: OBINUTUZUMAB
     Indication: CHRONIC LYMPHOCYTIC LEUKAEMIA
     Dosage: C1D1; FREQUENCY: ONCE A DAY
     Route: 042
     Dates: start: 20140624, end: 20140624
  6. SEPTRA DS [Concomitant]
     Active Substance: SULFAMETHOXAZOLE\TRIMETHOPRIM
     Dosage: 1 OTHER TAB, TWICE A DAY ON MON, WED, FRI
     Route: 048
     Dates: start: 20140623
  7. TYLENOL [Concomitant]
     Active Substance: ACETAMINOPHEN
     Indication: PROPHYLAXIS
     Dosage: 30 MINUTES PRE-OBINUTUZUMAB.
     Route: 048
     Dates: start: 20140624
  8. FILGRASTIM [Concomitant]
     Active Substance: FILGRASTIM
     Indication: PROPHYLAXIS
     Route: 058
     Dates: start: 20140823, end: 20140825
  9. OBINUTUZUMAB [Suspect]
     Active Substance: OBINUTUZUMAB
     Dosage: ON 19/AUG/2014, THE PATIENT RECEIVED LAST DOSE PRIOR TO SAE.
     Route: 042
     Dates: start: 20140722, end: 20140916
  10. BENDAMUSTINE [Suspect]
     Active Substance: BENDAMUSTINE
     Dosage: ON 20/AUG/2014, THE PATIENT RECEIVED LAST DOSE PRIOR TO SAE.
     Route: 042
     Dates: start: 20140723, end: 20140916
  11. DEXAMETHASONE. [Concomitant]
     Active Substance: DEXAMETHASONE
     Dosage: 30 MIS PRE BENDAMUSTINE
     Route: 065
     Dates: start: 20140622
  12. ZOFRAN [Concomitant]
     Active Substance: ONDANSETRON HYDROCHLORIDE
     Indication: PROPHYLAXIS
     Dosage: 30 MIN PRE-BENDAMUSTINE, THEN FOUR DOSES EVERY 12 HOURS.
     Route: 048
     Dates: start: 20140624
  13. K-DUR [Concomitant]
     Active Substance: POTASSIUM CHLORIDE
     Route: 048
     Dates: start: 20140908, end: 20140910
  14. OBINUTUZUMAB [Suspect]
     Active Substance: OBINUTUZUMAB
     Dosage: C1D8
     Route: 042
     Dates: start: 20140702, end: 20140702
  15. BENDAMUSTINE [Suspect]
     Active Substance: BENDAMUSTINE
     Route: 042
     Dates: start: 20140625, end: 20140625
  16. CIPROFLOXACIN. [Concomitant]
     Active Substance: CIPROFLOXACIN
     Route: 048
     Dates: start: 20140826, end: 20140831
  17. OBINUTUZUMAB [Suspect]
     Active Substance: OBINUTUZUMAB
     Dosage: C1D15
     Route: 042
     Dates: start: 20140709, end: 20140709
  18. BENDAMUSTINE [Suspect]
     Active Substance: BENDAMUSTINE
     Indication: CHRONIC LYMPHOCYTIC LEUKAEMIA
     Route: 042
     Dates: start: 20140624, end: 20140624
  19. BENDAMUSTINE [Suspect]
     Active Substance: BENDAMUSTINE
     Route: 042
     Dates: start: 20140722, end: 20140722
  20. ATORVASTATIN [Concomitant]
     Active Substance: ATORVASTATIN
     Route: 048
     Dates: start: 2000
  21. CETIRIZINE [Concomitant]
     Active Substance: CETIRIZINE HYDROCHLORIDE
     Route: 048
     Dates: start: 20140621, end: 20140625
  22. ALLOPURINOL. [Concomitant]
     Active Substance: ALLOPURINOL
     Indication: PROPHYLAXIS
     Dosage: HOLD ON BENDAMUSTINE DAYS
     Route: 048
     Dates: start: 20140622, end: 20140628
  23. MONTELUKAST [Concomitant]
     Active Substance: MONTELUKAST SODIUM
     Indication: PROPHYLAXIS
     Route: 048
     Dates: start: 20140621, end: 20140624
  24. OXYGEN. [Concomitant]
     Active Substance: OXYGEN
     Dosage: 3 L/MIN
     Route: 045
     Dates: start: 20140624, end: 20140624
  25. K-DUR [Concomitant]
     Active Substance: POTASSIUM CHLORIDE
     Route: 048
     Dates: start: 20140902, end: 20140908
  26. DEXAMETHASONE. [Concomitant]
     Active Substance: DEXAMETHASONE
     Indication: PROPHYLAXIS
     Dosage: 1 H PRE-OBINUTUZUMAB.
     Route: 042
     Dates: start: 20140624, end: 20140625
  27. FILGRASTIM [Concomitant]
     Active Substance: FILGRASTIM
     Dosage: HELD ON TREATMENT DAYS.
     Route: 058
     Dates: start: 20140628, end: 20140705
  28. FILGRASTIM [Concomitant]
     Active Substance: FILGRASTIM
     Route: 058
     Dates: start: 20140726, end: 20140801
  29. OBINUTUZUMAB [Suspect]
     Active Substance: OBINUTUZUMAB
     Dosage: C1D2
     Route: 042
     Dates: start: 20140625, end: 20140625
  30. SEPTRA DS [Concomitant]
     Active Substance: SULFAMETHOXAZOLE\TRIMETHOPRIM
     Indication: PROPHYLAXIS
     Dosage: TWICE A DAY ON MONDAY, WEDNESDAY AND FRIDAY.
     Route: 048
     Dates: start: 20140623
  31. BENADRYL [Concomitant]
     Active Substance: DIPHENHYDRAMINE HYDROCHLORIDE
     Indication: PROPHYLAXIS
     Dosage: 30 MIN PRE-OBINUTUZUMAB.
     Route: 042
     Dates: start: 20140624
  32. ACYCLOVIR. [Concomitant]
     Active Substance: ACYCLOVIR
     Route: 048
     Dates: start: 20140623
  33. FILGRASTIM [Concomitant]
     Active Substance: FILGRASTIM
     Route: 058
     Dates: start: 20140826, end: 20140831
  34. NORMAL SALINE [Concomitant]
     Active Substance: SODIUM CHLORIDE
     Dosage: CONTINUOUS 50 CC/HR
     Route: 042
     Dates: start: 20140908, end: 20140909

REACTIONS (2)
  - Obliterative bronchiolitis [Recovered/Resolved]
  - Febrile neutropenia [Recovered/Resolved]

NARRATIVE: CASE EVENT DATE: 20140826
